FAERS Safety Report 5055010-0 (Version None)
Quarter: 2006Q3

REPORT INFORMATION
  Report Type: 
  Country: None (occurrence: None)
  Receive Date: 20060719
  Receipt Date: 20060703
  Transmission Date: 20061208
  Serious: Yes (Other)
  Sender: FDA-Public Use
  Company Number: PHHO2006JP10846

PATIENT
  Age: 56 Year
  Sex: Female
  Weight: 57 kg

DRUGS (2)
  1. LOCHOL [Suspect]
     Indication: HYPERCHOLESTEROLAEMIA
     Dosage: 30 MG, QD
     Route: 048
     Dates: start: 20011122, end: 20060313
  2. MELBIN [Suspect]
     Dosage: 750 MG, UNK
     Dates: start: 20010828, end: 20060313

REACTIONS (3)
  - ABDOMINAL PAIN [None]
  - METASTASES TO LIVER [None]
  - RECTAL CANCER [None]
